FAERS Safety Report 9650290 (Version 2)
Quarter: 2013Q4

REPORT INFORMATION
  Report Type: Spontaneous
  Country: US (occurrence: US)
  Receive Date: 20131028
  Receipt Date: 20131028
  Transmission Date: 20140711
  Serious: Yes (Other)
  Sender: FDA-Public Use
  Company Number: US-NAPPMUNDI-USA-2013-0099718

PATIENT
  Age: 37 Year
  Sex: Female

DRUGS (4)
  1. OXYCONTIN (NDA 22-272) [Suspect]
     Indication: PAIN
     Dosage: 15 MG, BID
     Route: 048
  2. HYDROCODONE [Suspect]
     Indication: DRUG ABUSE
     Route: 048
  3. COCAINE [Suspect]
     Indication: SUBSTANCE ABUSE
     Route: 048
  4. BENZODIAZEPINE RELATED DRUGS [Suspect]
     Indication: DRUG ABUSE
     Route: 048

REACTIONS (1)
  - Substance abuse [Unknown]
